FAERS Safety Report 9313710 (Version 1)
Quarter: 2013Q2

REPORT INFORMATION
  Report Type: Spontaneous
  Country: DE (occurrence: DE)
  Receive Date: 20130529
  Receipt Date: 20130529
  Transmission Date: 20140414
  Serious: Yes (Hospitalization)
  Sender: FDA-Public Use
  Company Number: DE-ROCHE-1227538

PATIENT
  Sex: Female
  Weight: 2.36 kg

DRUGS (1)
  1. DIAZEPAM [Suspect]
     Indication: DRUG WITHDRAWAL MAINTENANCE THERAPY
     Route: 064

REACTIONS (4)
  - Convulsion [Recovered/Resolved]
  - Drug withdrawal syndrome neonatal [Recovered/Resolved]
  - Premature baby [Recovered/Resolved]
  - Maternal exposure timing unspecified [Unknown]
